FAERS Safety Report 21855263 (Version 1)
Quarter: 2023Q1

REPORT INFORMATION
  Report Type: Spontaneous
  Country: US (occurrence: US)
  Receive Date: 20230112
  Receipt Date: 20230112
  Transmission Date: 20230417
  Serious: No
  Sender: FDA-Public Use
  Company Number: US-SA-SAC20230106000821

PATIENT
  Age: 58 Year
  Sex: Female

DRUGS (2)
  1. DUPIXENT [Suspect]
     Active Substance: DUPILUMAB
     Indication: Asthma
     Dosage: 300 MG, QOW
     Route: 058
     Dates: start: 20200911
  2. DUPIXENT [Suspect]
     Active Substance: DUPILUMAB
     Indication: Dermatitis atopic

REACTIONS (7)
  - Infection [Recovering/Resolving]
  - Illness [Recovering/Resolving]
  - Impaired quality of life [Recovering/Resolving]
  - Influenza [Recovering/Resolving]
  - Malaise [Recovering/Resolving]
  - Sleep disorder [Recovering/Resolving]
  - Asthma [Recovering/Resolving]
